FAERS Safety Report 6626278-1 (Version None)
Quarter: 2010Q1

REPORT INFORMATION
  Report Type: 
  Country: None (occurrence: None)
  Receive Date: 20100310
  Receipt Date: 20090424
  Transmission Date: 20100710
  Serious: No
  Sender: FDA-Public Use
  Company Number: US-ABBOTT-08P-163-0475148-00

PATIENT
  Age: 43 Year
  Sex: Female
  Weight: 70.37 kg

DRUGS (2)
  1. LUPRON DEPOT [Suspect]
     Indication: ENDOMETRIOSIS
     Route: 050
     Dates: start: 20010101, end: 20020101
  2. ORAL CONTRACEPTIVE NOS [Concomitant]
     Indication: ENDOMETRIOSIS
     Route: 048

REACTIONS (3)
  - HOT FLUSH [None]
  - MENOPAUSAL SYMPTOMS [None]
  - MOOD SWINGS [None]
